FAERS Safety Report 7005169-0 (Version None)
Quarter: 2010Q3

REPORT INFORMATION
  Report Type: 
  Country: None (occurrence: None)
  Receive Date: 20100921
  Receipt Date: 20100910
  Transmission Date: 20110219
  Serious: Yes (Hospitalization)
  Sender: FDA-Public Use
  Company Number: DE-JNJFOC-20100207795

PATIENT
  Age: 50 Year
  Sex: Male
  Weight: 96.5 kg

DRUGS (15)
  1. INVEGA [Suspect]
     Indication: PRODUCT USED FOR UNKNOWN INDICATION
     Route: 048
     Dates: start: 20091224
  2. SEROQUEL [Suspect]
     Indication: PRODUCT USED FOR UNKNOWN INDICATION
     Route: 048
     Dates: start: 20091224
  3. SEROQUEL [Suspect]
     Route: 048
     Dates: start: 20091224
  4. SEROQUEL [Suspect]
     Route: 048
     Dates: start: 20091224
  5. SEROQUEL [Suspect]
     Route: 048
     Dates: start: 20091224
  6. SEROQUEL [Suspect]
     Route: 048
     Dates: start: 20091224
  7. VALPROAT [Suspect]
     Indication: PRODUCT USED FOR UNKNOWN INDICATION
     Route: 048
     Dates: start: 20091224
  8. VALPROAT [Suspect]
     Route: 048
     Dates: start: 20091224
  9. VALPROAT [Suspect]
     Route: 048
     Dates: start: 20091224
  10. VALPROAT [Suspect]
     Route: 048
     Dates: start: 20091224
  11. VALPROAT [Suspect]
     Route: 048
     Dates: start: 20091224
  12. DIAZEPAM [Concomitant]
     Route: 048
     Dates: start: 20091225
  13. FLUNITRAZEPAM [Concomitant]
     Route: 048
     Dates: start: 20091225
  14. AMARYL [Concomitant]
     Route: 048
     Dates: start: 20091225
  15. ACTRAPHANE [Concomitant]
     Route: 058

REACTIONS (3)
  - DELIRIUM [None]
  - HYPONATRAEMIA [None]
  - POLYDIPSIA [None]
